FAERS Safety Report 7758085-0 (Version None)
Quarter: 2011Q3

REPORT INFORMATION
  Report Type: 
  Country: None (occurrence: None)
  Receive Date: 20110919
  Receipt Date: 20110912
  Transmission Date: 20111222
  Serious: No
  Sender: FDA-Public Use
  Company Number: US-BIOGENIDEC-2011BI035112

PATIENT
  Age: 35 Year
  Sex: Female

DRUGS (3)
  1. TYSABRI [Suspect]
     Indication: MULTIPLE SCLEROSIS
     Route: 042
     Dates: start: 20110224
  2. TYSABRI [Suspect]
     Route: 042
     Dates: start: 20091119, end: 20100913
  3. TYSABRI [Suspect]
     Route: 042
     Dates: start: 20070110, end: 20070110

REACTIONS (4)
  - ASTHENIA [None]
  - CONFUSIONAL STATE [None]
  - COGNITIVE DISORDER [None]
  - FATIGUE [None]
